FAERS Safety Report 24160178 (Version 1)
Quarter: 2024Q3

REPORT INFORMATION
  Report Type: Spontaneous
  Country: CN (occurrence: CN)
  Receive Date: 20240801
  Receipt Date: 20240801
  Transmission Date: 20241016
  Serious: Yes (Other)
  Sender: BAXTER
  Company Number: None

PATIENT
  Age: 68 Year
  Sex: Female
  Weight: 51 kg

DRUGS (6)
  1. MANNITOL [Suspect]
     Active Substance: MANNITOL
     Indication: Back pain
     Dosage: 250 ML, ONCE DAILY (DOSAGE FORM: INJECTION)
     Route: 041
     Dates: start: 20240719, end: 20240719
  2. MANNITOL [Suspect]
     Active Substance: MANNITOL
     Indication: Sciatica
  3. DEXAMETHASONE SODIUM PHOSPHATE [Suspect]
     Active Substance: DEXAMETHASONE PHOSPHATE\DEXAMETHASONE SODIUM PHOSPHATE
     Indication: Back pain
     Dosage: 5 MG, ONCE DAILY
     Route: 041
     Dates: start: 20240719, end: 20240719
  4. DEXAMETHASONE SODIUM PHOSPHATE [Suspect]
     Active Substance: DEXAMETHASONE PHOSPHATE\DEXAMETHASONE SODIUM PHOSPHATE
     Indication: Sciatica
  5. SODIUM CHLORIDE [Suspect]
     Active Substance: SODIUM CHLORIDE
     Indication: Back pain
     Dosage: 100 ML, ONCE DAILY
     Route: 041
     Dates: start: 20240719, end: 20240719
  6. SODIUM CHLORIDE [Suspect]
     Active Substance: SODIUM CHLORIDE
     Indication: Sciatica

REACTIONS (8)
  - Electrocardiogram Q wave abnormal [Recovering/Resolving]
  - Atrioventricular block first degree [Recovering/Resolving]
  - Electrocardiogram P wave abnormal [Recovering/Resolving]
  - Sinus bradycardia [Recovering/Resolving]
  - Adverse drug reaction [Recovering/Resolving]
  - Chest discomfort [Recovering/Resolving]
  - Dyspnoea [Recovering/Resolving]
  - Dizziness [Recovering/Resolving]

NARRATIVE: CASE EVENT DATE: 20240719
